FAERS Safety Report 15722123 (Version 2)
Quarter: 2019Q1

REPORT INFORMATION
  Report Type: Report from Study
  Country: US (occurrence: US)
  Receive Date: 20181214
  Receipt Date: 20190104
  Transmission Date: 20190417
  Serious: Yes (Death, Hospitalization)
  Sender: FDA-Public Use
  Company Number: US-TESARO-2018-TSO1723-US

PATIENT
  Age: 79 Year
  Sex: Female

DRUGS (5)
  1. ZEJULA [Suspect]
     Active Substance: NIRAPARIB
     Indication: OVARIAN CANCER
     Dosage: 100 MG, BID
     Route: 065
     Dates: start: 20181024, end: 2018
  2. COLACE [Concomitant]
     Active Substance: DOCUSATE SODIUM
     Indication: PRODUCT USED FOR UNKNOWN INDICATION
     Dosage: 100 MG, QD
     Route: 048
     Dates: start: 20180920
  3. COUMADIN [Concomitant]
     Active Substance: WARFARIN SODIUM
     Indication: PRODUCT USED FOR UNKNOWN INDICATION
     Dosage: UNK
     Dates: start: 20180523, end: 20181205
  4. ZEJULA [Suspect]
     Active Substance: NIRAPARIB
     Dosage: 200 MG, BID
     Dates: start: 2018, end: 20181121
  5. ZOFRAN [Concomitant]
     Active Substance: ONDANSETRON HYDROCHLORIDE
     Indication: PRODUCT USED FOR UNKNOWN INDICATION
     Dosage: 8 MG, BID WHILE ON CHEMO DRUG
     Dates: start: 20181024

REACTIONS (11)
  - Haemoglobin decreased [Recovered/Resolved]
  - Urinary tract infection [Unknown]
  - Malignant neoplasm progression [Fatal]
  - Dyspnoea [Unknown]
  - Overdose [Unknown]
  - Abdominal pain [Unknown]
  - Fall [Unknown]
  - Head injury [Unknown]
  - International normalised ratio abnormal [Recovered/Resolved]
  - Muscular weakness [Unknown]
  - Blood pressure increased [Unknown]

NARRATIVE: CASE EVENT DATE: 20181207
